FAERS Safety Report 6452745-X (Version None)
Quarter: 2009Q4

REPORT INFORMATION
  Report Type: 
  Country: None (occurrence: None)
  Receive Date: 20091124
  Receipt Date: 20091123
  Transmission Date: 20100525
  Serious: Yes (Hospitalization)
  Sender: FDA-Public Use
  Company Number: US-PFIZER INC-2009258110

PATIENT
  Sex: Female
  Weight: 113 kg

DRUGS (5)
  1. LIPITOR [Suspect]
     Indication: BLOOD CHOLESTEROL
     Dosage: 10 MG, 1X/DAY
     Dates: start: 20090101, end: 20090801
  2. PREDNISONE [Suspect]
     Indication: ASTHMA
     Dosage: UNKNOWN
     Dates: end: 20090801
  3. ADVAIR DISKUS 100/50 [Concomitant]
     Dosage: UNK
  4. LISINOPRIL [Concomitant]
     Dosage: 40 MG, 1X/DAY
  5. PREVACID [Concomitant]
     Dosage: 30 MG, 1X/DAY

REACTIONS (5)
  - ASTHMA [None]
  - BLOOD CHOLESTEROL ABNORMAL [None]
  - CHRONIC OBSTRUCTIVE PULMONARY DISEASE [None]
  - MUSCLE SPASMS [None]
  - MYALGIA [None]
